FAERS Safety Report 8274678-9 (Version None)
Quarter: 2012Q2

REPORT INFORMATION
  Report Type: 
  Country: None (occurrence: None)
  Receive Date: 20120411
  Receipt Date: 20120404
  Transmission Date: 20120825
  Serious: Yes (Death)
  Sender: FDA-Public Use
  Company Number: CH-GLAXOSMITHKLINE-B0794336A

PATIENT
  Age: 66 Year
  Sex: Female

DRUGS (12)
  1. ESOMEPRAZOLE MAGNESIUM [Suspect]
     Indication: PRODUCT USED FOR UNKNOWN INDICATION
     Dosage: 40MG PER DAY
     Route: 042
     Dates: start: 20120229
  2. DIPYRONE TAB [Suspect]
     Indication: PYREXIA
     Route: 042
     Dates: start: 20120229, end: 20120303
  3. ESCITALOPRAM [Concomitant]
     Dosage: 5MG PER DAY
     Route: 048
     Dates: end: 20120229
  4. METHOTREXATE [Suspect]
     Indication: PERIPHERAL T-CELL LYMPHOMA UNSPECIFIED
     Dosage: 5500MG PER DAY
     Route: 042
     Dates: start: 20120303, end: 20120303
  5. FRAGMIN [Suspect]
     Indication: PROPHYLAXIS
     Dosage: 5000U PER DAY
     Route: 058
     Dates: start: 20120229, end: 20120304
  6. PREDNISOLONE [Concomitant]
     Dosage: 100MG PER DAY
     Route: 048
     Dates: end: 20120229
  7. CARBOXYPEPTIDASE G2 [Concomitant]
     Dosage: 4000U SINGLE DOSE
     Route: 042
     Dates: start: 20120304, end: 20120304
  8. ZOVIRAX [Suspect]
     Indication: ENCEPHALITIS VIRAL
     Route: 042
     Dates: start: 20120229, end: 20120304
  9. ROCEPHIN [Suspect]
     Indication: BACTERIAL INFECTION
     Dosage: 2G PER DAY
     Route: 042
     Dates: start: 20120229, end: 20120303
  10. PANTOPRAZOLE [Concomitant]
     Dosage: 40MG PER DAY
     Route: 048
     Dates: end: 20120229
  11. AMOXICILLIN TRIHYDRATE [Suspect]
     Indication: BACTERIAL INFECTION
     Route: 042
     Dates: start: 20120229
  12. LEUCOVORIN CALCIUM [Concomitant]
     Route: 042
     Dates: start: 20120304

REACTIONS (7)
  - LIVER INJURY [None]
  - CLOSTRIDIUM DIFFICILE COLITIS [None]
  - DRUG LEVEL INCREASED [None]
  - RENAL FAILURE ACUTE [None]
  - SEPSIS [None]
  - PANCYTOPENIA [None]
  - DRUG INTERACTION [None]
